FAERS Safety Report 11827642 (Version 2)
Quarter: 2016Q1

REPORT INFORMATION
  Report Type: Spontaneous
  Country: GB (occurrence: GB)
  Receive Date: 20151211
  Receipt Date: 20160328
  Transmission Date: 20160525
  Serious: Yes (Hospitalization, Other)
  Sender: FDA-Public Use
  Company Number: GB-BRISTOL-MYERS SQUIBB COMPANY-BMS-2015-083821

PATIENT
  Age: 48 Year
  Sex: Male

DRUGS (1)
  1. YERVOY [Suspect]
     Active Substance: IPILIMUMAB
     Indication: MALIGNANT MELANOMA
     Dosage: 1 DF, UNK
     Route: 065
     Dates: start: 20120719, end: 20120920

REACTIONS (8)
  - Vitiligo [Unknown]
  - Myalgia [Unknown]
  - Pyrexia [Unknown]
  - Dyspnoea [Unknown]
  - Autoimmune colitis [Unknown]
  - Headache [Unknown]
  - Hyperhidrosis [Unknown]
  - Cough [Unknown]

NARRATIVE: CASE EVENT DATE: 20120824
